FAERS Safety Report 19273927 (Version 1)
Quarter: 2021Q2

REPORT INFORMATION
  Report Type: Report from Study
  Country: IT (occurrence: IT)
  Receive Date: 20210519
  Receipt Date: 20210519
  Transmission Date: 20210717
  Serious: Yes (Death)
  Sender: FDA-Public Use
  Company Number: IT-PFIZER INC-2021546881

PATIENT

DRUGS (12)
  1. DACTINOMYCIN [Suspect]
     Active Substance: DACTINOMYCIN
     Indication: EWING^S SARCOMA
  2. CYCLOPHOSPHAMIDE. [Suspect]
     Active Substance: CYCLOPHOSPHAMIDE
     Indication: EWING^S SARCOMA
  3. CYCLOPHOSPHAMIDE. [Suspect]
     Active Substance: CYCLOPHOSPHAMIDE
     Indication: PERIPHERAL PRIMITIVE NEUROECTODERMAL BONE TUMOUR
     Dosage: 1200 MG/M2, CYCLIC, (OVER 30 MINUTES)
  4. IFOSFAMIDE. [Suspect]
     Active Substance: IFOSFAMIDE
     Indication: PERIPHERAL PRIMITIVE NEUROECTODERMAL BONE TUMOUR
     Dosage: 1800 MG/M2, CYCLIC, (OVER 1 HOUR X 5 DAYS)
  5. VINCRISTINE SULFATE. [Suspect]
     Active Substance: VINCRISTINE SULFATE
     Indication: PERIPHERAL PRIMITIVE NEUROECTODERMAL BONE TUMOUR
     Dosage: 1.5 MG/M2, CYCLIC, (PUSH; TOP DOSE, 2 MG)
  6. DOXORUBICIN HCL [Suspect]
     Active Substance: DOXORUBICIN HYDROCHLORIDE
     Indication: PERIPHERAL PRIMITIVE NEUROECTODERMAL BONE TUMOUR
     Dosage: 40 MG/M2, CYCLIC, (OVER 4 HOURS X 2 DAYS)
  7. ETOPOSIDE. [Suspect]
     Active Substance: ETOPOSIDE
     Indication: EWING^S SARCOMA
  8. IFOSFAMIDE. [Suspect]
     Active Substance: IFOSFAMIDE
     Indication: EWING^S SARCOMA
  9. ETOPOSIDE. [Suspect]
     Active Substance: ETOPOSIDE
     Indication: PERIPHERAL PRIMITIVE NEUROECTODERMAL BONE TUMOUR
     Dosage: 100 MG/M2, CYCLIC, (OVER 1 HOUR X 5 DAYS)
  10. DACTINOMYCIN [Suspect]
     Active Substance: DACTINOMYCIN
     Indication: PERIPHERAL PRIMITIVE NEUROECTODERMAL BONE TUMOUR
     Dosage: 1.25 MG/M2, CYCLIC, (PUSH;TOP DOSE, 2 MG)
  11. DOXORUBICIN HCL [Suspect]
     Active Substance: DOXORUBICIN HYDROCHLORIDE
     Indication: EWING^S SARCOMA
  12. VINCRISTINE SULFATE. [Suspect]
     Active Substance: VINCRISTINE SULFATE
     Indication: EWING^S SARCOMA

REACTIONS (1)
  - Toxicity to various agents [Fatal]
